FAERS Safety Report 9378359 (Version 1)
Quarter: 2013Q3

REPORT INFORMATION
  Report Type: Spontaneous
  Country: PH (occurrence: PH)
  Receive Date: 20130701
  Receipt Date: 20130701
  Transmission Date: 20140515
  Serious: Yes (Death)
  Sender: FDA-Public Use
  Company Number: PH-PFIZER INC-2013191999

PATIENT
  Age: 90 Year
  Sex: Male

DRUGS (2)
  1. ZITHROMAX [Suspect]
     Indication: PNEUMONIA
     Dosage: UNK
  2. CEFTRIAXONE [Concomitant]
     Dosage: UNK

REACTIONS (1)
  - Death [Fatal]
